FAERS Safety Report 17929223 (Version 1)
Quarter: 2020Q2

REPORT INFORMATION
  Report Type: Spontaneous
  Country: US (occurrence: US)
  Receive Date: 20200622
  Receipt Date: 20200622
  Transmission Date: 20200714
  Serious: Yes (Hospitalization)
  Sender: FDA-Public Use
  Company Number: None

PATIENT
  Age: 78 Year
  Sex: Male

DRUGS (28)
  1. ESBRIET [Suspect]
     Active Substance: PIRFENIDONE
     Indication: IDIOPATHIC PULMONARY FIBROSIS
     Dosage: DOSE OR AMOUNT: CAPS
     Route: 048
     Dates: start: 20161201
  2. EZETIMBE [Concomitant]
     Active Substance: EZETIMIBE
  3. GABAPENTIN. [Concomitant]
     Active Substance: GABAPENTIN
  4. AMOX/K CLAV [Concomitant]
     Active Substance: AMOXICILLIN\CLAVULANATE POTASSIUM
  5. BACLOFEN. [Concomitant]
     Active Substance: BACLOFEN
  6. DULOXETINE. [Concomitant]
     Active Substance: DULOXETINE
  7. MIDODRINE [Concomitant]
     Active Substance: MIDODRINE
  8. ZOLIPIDEM [Concomitant]
  9. APAP/CODEINE [Concomitant]
     Active Substance: ACETAMINOPHEN\CODEINE PHOSPHATE
  10. MELOXICAM. [Concomitant]
     Active Substance: MELOXICAM
  11. PREGABALIN. [Concomitant]
     Active Substance: PREGABALIN
  12. TEMAZEPAM. [Concomitant]
     Active Substance: TEMAZEPAM
  13. VITAMIN D [Concomitant]
     Active Substance: VITAMIN D NOS
  14. EZETIMBE [Concomitant]
     Active Substance: EZETIMIBE
  15. ATORVASTATIN [Concomitant]
     Active Substance: ATORVASTATIN
  16. NO DRUG NAME [Concomitant]
  17. TRAMADOL HCL [Concomitant]
     Active Substance: TRAMADOL HYDROCHLORIDE
  18. OMEPRAZOLE. [Concomitant]
     Active Substance: OMEPRAZOLE
  19. TRAZODONE [Concomitant]
     Active Substance: TRAZODONE HYDROCHLORIDE
  20. BANOPHEN [Concomitant]
     Active Substance: DIPHENHYDRAMINE HYDROCHLORIDE
  21. CEPHALEXIN. [Concomitant]
     Active Substance: CEPHALEXIN
  22. LACTULOSE. [Concomitant]
     Active Substance: LACTULOSE
  23. PREDNISONE. [Concomitant]
     Active Substance: PREDNISONE
  24. AZITHROMYCIN ANHYDROUS. [Concomitant]
     Active Substance: AZITHROMYCIN ANHYDROUS
  25. ELIQUIS [Concomitant]
     Active Substance: APIXABAN
  26. NABUMETONE. [Concomitant]
     Active Substance: NABUMETONE
  27. TAMSULOSIN [Concomitant]
     Active Substance: TAMSULOSIN
  28. ELIQUIS [Concomitant]
     Active Substance: APIXABAN

REACTIONS (2)
  - Therapy interrupted [None]
  - Medical device implantation [None]

NARRATIVE: CASE EVENT DATE: 202006
